FAERS Safety Report 21431334 (Version 1)
Quarter: 2022Q4

REPORT INFORMATION
  Report Type: Other
  Country: DE (occurrence: None)
  Receive Date: 20221009
  Receipt Date: 20221009
  Transmission Date: 20230113
  Serious: Yes (Other)
  Sender: FDA-Public Use
  Company Number: DE-ROCHE-3195186

PATIENT
  Age: 55 Year
  Sex: Male

DRUGS (11)
  1. BEVACIZUMAB [Suspect]
     Active Substance: BEVACIZUMAB
     Indication: Colorectal cancer metastatic
     Route: 065
  2. CETUXIMAB [Suspect]
     Active Substance: CETUXIMAB
     Indication: Colorectal cancer metastatic
     Dosage: 250 MG/SQM WEEKLY
     Route: 065
  3. OXALIPLATIN [Suspect]
     Active Substance: OXALIPLATIN
     Indication: Colorectal cancer metastatic
     Dosage: 85 MG/SQM D1
     Route: 065
  4. LEUCOVORIN [Suspect]
     Active Substance: LEUCOVORIN
     Indication: Colorectal cancer metastatic
     Dosage: 200 MG/SQM D1 AND 600 MG/SQM D1 + 2, Q14D
     Route: 065
  5. FLUOROURACIL [Suspect]
     Active Substance: FLUOROURACIL
     Indication: Colorectal cancer metastatic
     Dosage: 400 MG/SQM D1, 600 MG/SQM D1 + 2, Q14D
     Route: 065
  6. IRINOTECAN [Suspect]
     Active Substance: IRINOTECAN
     Indication: Colorectal cancer metastatic
     Dosage: 180 MG/SQM D1
     Route: 065
  7. PEMBROLIZUMAB [Suspect]
     Active Substance: PEMBROLIZUMAB
     Indication: Colorectal cancer metastatic
     Dosage: (200 MG/SQM,Q21D TOTAL OF 9 CYCLES
     Route: 065
  8. IPILIMUMAB [Concomitant]
     Active Substance: IPILIMUMAB
     Dosage: 3 MG/KG IN CYCLE 1, FOLLOWED BY 1 MG/KG IN CYCLE 2-4. CYCLE 3 AND 4 WERE DELAYED
  9. IPILIMUMAB [Concomitant]
     Active Substance: IPILIMUMAB
  10. NIVOLUMAB [Concomitant]
     Active Substance: NIVOLUMAB
     Dosage: DOSE WAS 1 MG /KG IN CYCLE 1 AND 3 MG/KG FROM CYCLE 2 ON.
  11. NIVOLUMAB [Concomitant]
     Active Substance: NIVOLUMAB

REACTIONS (1)
  - Disease progression [Unknown]
